FAERS Safety Report 8193879-1 (Version None)
Quarter: 2012Q1

REPORT INFORMATION
  Report Type: 
  Country: None (occurrence: None)
  Receive Date: 20120308
  Receipt Date: 20120229
  Transmission Date: 20120608
  Serious: Yes (Other)
  Sender: FDA-Public Use
  Company Number: DE-UCBSA-052505

PATIENT
  Age: 12 Year
  Sex: Female

DRUGS (3)
  1. CLOBAZAM [Suspect]
  2. LEVETIRACETAM [Suspect]
  3. STIRIPENTOL [Suspect]

REACTIONS (2)
  - WEIGHT INCREASED [None]
  - STATUS EPILEPTICUS [None]
